FAERS Safety Report 7265095-9 (Version None)
Quarter: 2011Q1

REPORT INFORMATION
  Report Type: 
  Country: None (occurrence: None)
  Receive Date: 20110131
  Receipt Date: 20110126
  Transmission Date: 20110831
  Serious: No
  Sender: FDA-Public Use
  Company Number: US-ROXANE LABORATORIES, INC.-2011-RO-00112RO

PATIENT
  Age: 83 Year
  Sex: Female

DRUGS (2)
  1. PREDNISONE [Suspect]
     Indication: TEMPORAL ARTERITIS
     Dosage: 9 MG
     Route: 048
  2. XANAX [Concomitant]
     Indication: ANXIETY

REACTIONS (4)
  - ALOPECIA [None]
  - WEIGHT INCREASED [None]
  - ONYCHOMADESIS [None]
  - BLINDNESS [None]
